FAERS Safety Report 5543109-1 (Version None)
Quarter: 2007Q4

REPORT INFORMATION
  Report Type: 
  Country: None (occurrence: None)
  Receive Date: 20071210
  Receipt Date: 20071128
  Transmission Date: 20080405
  Serious: Yes (Death)
  Sender: FDA-Public Use
  Company Number: US-PFIZER INC-2007098289

PATIENT
  Age: 39 Year
  Sex: Male

DRUGS (1)
  1. GEODON [Suspect]
     Indication: AFFECTIVE DISORDER

REACTIONS (1)
  - DEATH [None]
